FAERS Safety Report 6533661-1 (Version None)
Quarter: 2010Q1

REPORT INFORMATION
  Report Type: 
  Country: None (occurrence: None)
  Receive Date: 20100108
  Receipt Date: 20100108
  Transmission Date: 20100710
  Serious: Yes (Hospitalization, Other)
  Sender: FDA-Public Use
  Company Number: None

PATIENT
  Age: 54 Year
  Sex: Female
  Weight: 61.2356 kg

DRUGS (1)
  1. ZOLPIDEM TARTRATE [Suspect]
     Indication: INSOMNIA
     Dosage: ONE TABLET BY MOUTH AS NEEDED FOR SLEE PO
     Route: 048
     Dates: start: 20090512, end: 20090518

REACTIONS (6)
  - ABNORMAL BEHAVIOUR [None]
  - CHEST PAIN [None]
  - CONVULSION [None]
  - FEELING ABNORMAL [None]
  - MEMORY IMPAIRMENT [None]
  - RESTLESSNESS [None]
